FAERS Safety Report 14211057 (Version 2)
Quarter: 2017Q4

REPORT INFORMATION
  Report Type: Spontaneous
  Country: US (occurrence: US)
  Receive Date: 20171121
  Receipt Date: 20171124
  Transmission Date: 20180321
  Serious: No
  Sender: FDA-Public Use
  Company Number: US-PFIZER INC-2017501806

PATIENT
  Sex: Female

DRUGS (1)
  1. PREMARIN [Suspect]
     Active Substance: ESTROGENS, CONJUGATED
     Dosage: UNK
     Dates: start: 2007

REACTIONS (4)
  - Suspected counterfeit product [Unknown]
  - Emotional disorder [Unknown]
  - Hormone level abnormal [Unknown]
  - Drug ineffective [Unknown]
